FAERS Safety Report 7090972-1 (Version None)
Quarter: 2010Q4

REPORT INFORMATION
  Report Type: 
  Country: None (occurrence: None)
  Receive Date: 20101105
  Receipt Date: 20101105
  Transmission Date: 20110411
  Serious: Yes (Other)
  Sender: FDA-Public Use
  Company Number: None

PATIENT
  Sex: Female
  Weight: 70.5 kg

DRUGS (1)
  1. BERRY SMOOTHIE READI-CAT 2  2.1% W/W, 2.0% W/W EZ EM NDC 2909-715-03 [Suspect]
     Indication: PROCEDURAL PAIN
     Dosage: (2) 450 ML 3 HRS PRIOR ORAL O47
     Route: 048
     Dates: start: 20101027

REACTIONS (5)
  - ARTHRALGIA [None]
  - BLADDER PAIN [None]
  - DIARRHOEA [None]
  - NAUSEA [None]
  - VOMITING [None]
